FAERS Safety Report 8022262-4 (Version None)
Quarter: 2012Q1

REPORT INFORMATION
  Report Type: 
  Country: None (occurrence: None)
  Receive Date: 20120104
  Receipt Date: 20111227
  Transmission Date: 20120608
  Serious: Yes (Hospitalization, Other)
  Sender: FDA-Public Use
  Company Number: US-BAYER-2011-012422

PATIENT
  Age: 23 Year
  Sex: Female
  Weight: 74.83 kg

DRUGS (12)
  1. YAZ [Suspect]
  2. YAZ [Suspect]
     Indication: PREMENSTRUAL SYNDROME
     Dosage: UNK
     Route: 048
     Dates: start: 20090101, end: 20090301
  3. YASMIN [Suspect]
  4. CYMBALTA [Concomitant]
     Indication: ANXIETY
     Dosage: UNK
     Dates: start: 20070101, end: 20090101
  5. YASMIN [Suspect]
     Indication: PREMENSTRUAL SYNDROME
     Dosage: UNK
     Route: 048
     Dates: start: 20070501, end: 20081101
  6. YAZ [Suspect]
     Indication: POLYCYSTIC OVARIES
  7. YASMIN [Suspect]
     Indication: POLYCYSTIC OVARIES
  8. DROSPIRENONE AND ETHINYL ESTRADIOL [Suspect]
     Indication: POLYCYSTIC OVARIES
  9. CYMBALTA [Concomitant]
     Indication: DEPRESSION
  10. DROSPIRENONE AND ETHINYL ESTRADIOL [Suspect]
     Indication: PREMENSTRUAL SYNDROME
     Dosage: UNK
     Route: 048
     Dates: start: 20081101, end: 20090101
  11. DROSPIRENONE AND ETHINYL ESTRADIOL [Suspect]
  12. PROTONIX [Concomitant]

REACTIONS (14)
  - CHOLECYSTITIS [None]
  - IRRITABLE BOWEL SYNDROME [None]
  - EATING DISORDER [None]
  - ANXIETY [None]
  - DEPRESSION [None]
  - BILIARY DYSKINESIA [None]
  - ABDOMINAL PAIN [None]
  - GASTROOESOPHAGEAL REFLUX DISEASE [None]
  - ABDOMINAL PAIN UPPER [None]
  - CYSTITIS NONINFECTIVE [None]
  - SUICIDAL BEHAVIOUR [None]
  - GALLBLADDER DISORDER [None]
  - EMOTIONAL DISTRESS [None]
  - GASTROINTESTINAL PAIN [None]
